FAERS Safety Report 9622108 (Version 1)
Quarter: 2013Q4

REPORT INFORMATION
  Report Type: Spontaneous
  Country: US (occurrence: US)
  Receive Date: 20131015
  Receipt Date: 20131015
  Transmission Date: 20140711
  Serious: No
  Sender: FDA-Public Use
  Company Number: US-PURDUE-USA-2012-0085933

PATIENT
  Age: 25 Year
  Sex: Male

DRUGS (2)
  1. BUTRANS [Suspect]
     Indication: PAIN IN EXTREMITY
     Dosage: UNK
     Route: 062
  2. OPIOIDS [Concomitant]
     Indication: BREAKTHROUGH PAIN
     Dosage: UNK

REACTIONS (2)
  - Drug effect decreased [Unknown]
  - Pain in extremity [Unknown]
